FAERS Safety Report 22652694 (Version 1)
Quarter: 2023Q2

REPORT INFORMATION
  Report Type: Other
  Country: US (occurrence: None)
  Receive Date: 20230629
  Receipt Date: 20230629
  Transmission Date: 20230721
  Serious: Yes (Hospitalization)
  Sender: FDA-Public Use
  Company Number: US-ROCHE-3376929

PATIENT
  Age: 4 Year
  Sex: Female
  Weight: 19.2 kg

DRUGS (2)
  1. EVRYSDI [Suspect]
     Active Substance: RISDIPLAM
     Indication: Spinal muscular atrophy
     Dosage: 0.75 MG/ML, TAKE 6.6ML (5MG) BY MOUTH 1 TIME EACH DAY
     Route: 048
  2. ZOLGENSMA [Concomitant]
     Active Substance: ONASEMNOGENE ABEPARVOVEC-XIOI
     Route: 048

REACTIONS (1)
  - Scoliosis surgery [Recovering/Resolving]

NARRATIVE: CASE EVENT DATE: 20230424
